FAERS Safety Report 5544809-X (Version None)
Quarter: 2007Q4

REPORT INFORMATION
  Report Type: 
  Country: None (occurrence: None)
  Receive Date: 20071108
  Receipt Date: 20071030
  Transmission Date: 20080405
  Serious: Yes (Other)
  Sender: FDA-Public Use
  Company Number: AEUSA200700248

PATIENT
  Sex: Female

DRUGS (4)
  1. IMMUNE GLOBULIN INTRAVENOUS (HUMAN) [Suspect]
     Indication: PEMPHIGUS
     Dosage: 2000 MG/KG;UNKNOWN;IV
     Route: 042
  2. CORTICOSTEROIDS [Concomitant]
  3. IMMUNOSUPPRESSIVE [Concomitant]
  4. AGENTS [Concomitant]

REACTIONS (1)
  - BRONCHOSPASM [None]
